FAERS Safety Report 4687680-0 (Version None)
Quarter: 2005Q2

REPORT INFORMATION
  Report Type: 
  Country: None (occurrence: None)
  Receive Date: 20050610
  Receipt Date: 20050601
  Transmission Date: 20051028
  Serious: Yes (Death)
  Sender: FDA-Public Use
  Company Number: FR-JNJFOC-20050601357

PATIENT
  Sex: Female

DRUGS (1)
  1. REMINYL [Suspect]
     Route: 049

REACTIONS (1)
  - HEPATIC VEIN THROMBOSIS [None]
